FAERS Safety Report 8484878-0 (Version None)
Quarter: 2012Q3

REPORT INFORMATION
  Report Type: 
  Country: None (occurrence: None)
  Receive Date: 20120703
  Receipt Date: 20120627
  Transmission Date: 20120928
  Serious: Yes (Other)
  Sender: FDA-Public Use
  Company Number: US-BAYER-2012-063660

PATIENT
  Age: 75 Year
  Sex: Male

DRUGS (1)
  1. MOXIFLOXACIN [Suspect]
     Indication: RESPIRATORY DISORDER
     Dosage: UNK
     Route: 042

REACTIONS (1)
  - IRIS TRANSILLUMINATION DEFECT [None]
